FAERS Safety Report 15911986 (Version 1)
Quarter: 2019Q1

REPORT INFORMATION
  Report Type: Spontaneous
  Country: US (occurrence: US)
  Receive Date: 20190204
  Receipt Date: 20190204
  Transmission Date: 20190417
  Serious: No
  Sender: FDA-Public Use
  Company Number: US-ABBVIE-18K-163-2305354-00

PATIENT
  Age: 67 Year
  Sex: Female

DRUGS (9)
  1. CLONAZEPAM. [Concomitant]
     Active Substance: CLONAZEPAM
     Indication: PANIC ATTACK
  2. XELJANZ XR [Interacting]
     Active Substance: TOFACITINIB CITRATE
     Indication: RHEUMATOID ARTHRITIS
     Route: 048
     Dates: start: 201802, end: 201802
  3. PANTOPRAZOLE SODIUM. [Concomitant]
     Active Substance: PANTOPRAZOLE SODIUM
     Indication: GASTROOESOPHAGEAL REFLUX DISEASE
     Dosage: HAD BEEN ON SINCE 2005 OR 2006
     Route: 048
  4. REMERON [Concomitant]
     Active Substance: MIRTAZAPINE
     Indication: SLEEP DISORDER THERAPY
  5. CLONAZEPAM. [Concomitant]
     Active Substance: CLONAZEPAM
     Indication: ANXIETY
     Route: 048
     Dates: start: 1994
  6. TRAMADOL. [Concomitant]
     Active Substance: TRAMADOL
     Dates: start: 2004
  7. HUMIRA [Suspect]
     Active Substance: ADALIMUMAB
     Indication: RHEUMATOID ARTHRITIS
     Route: 058
     Dates: end: 201710
  8. TRILEPTAL [Interacting]
     Active Substance: OXCARBAZEPINE
     Indication: PRODUCT USED FOR UNKNOWN INDICATION
     Dosage: HAD BEEN ON  FOR 6-7 MONTHS
     Route: 048
  9. TRAMADOL. [Concomitant]
     Active Substance: TRAMADOL
     Indication: PAIN
     Dates: start: 2000

REACTIONS (14)
  - Tremor [Unknown]
  - Abdominal pain lower [Recovered/Resolved]
  - Oral pain [Unknown]
  - Dizziness [Unknown]
  - Muscle spasms [Unknown]
  - Diarrhoea [Unknown]
  - Dyspepsia [Unknown]
  - Flatulence [Unknown]
  - Rheumatoid arthritis [Unknown]
  - Drug interaction [Unknown]
  - Gastrointestinal disorder [Unknown]
  - Nausea [Unknown]
  - Cold sweat [Unknown]
  - Stomatitis [Unknown]

NARRATIVE: CASE EVENT DATE: 201802
